FAERS Safety Report 12240980 (Version 1)
Quarter: 2016Q2

REPORT INFORMATION
  Report Type: Spontaneous
  Country: TR (occurrence: TR)
  Receive Date: 20160406
  Receipt Date: 20160406
  Transmission Date: 20160815
  Serious: Yes (Other)
  Sender: FDA-Public Use
  Company Number: TR-PAR PHARMACEUTICAL COMPANIES-2016SCPR015324

PATIENT

DRUGS (1)
  1. CYPROHEPTADINE. [Suspect]
     Active Substance: CYPROHEPTADINE
     Indication: DECREASED APPETITE
     Dosage: 4 MG / DAY
     Route: 065

REACTIONS (3)
  - Social anxiety disorder [Unknown]
  - Product use issue [Unknown]
  - Obsessive-compulsive disorder [Recovered/Resolved]
